FAERS Safety Report 24146430 (Version 2)
Quarter: 2024Q3

REPORT INFORMATION
  Report Type: Other
  Country: IT (occurrence: IT)
  Receive Date: 20240729
  Receipt Date: 20240729
  Transmission Date: 20241016
  Serious: Yes (Hospitalization, Other)
  Sender: STRIDES
  Company Number: IT-EMA-DD-20210715-z4x8q8-172116

PATIENT

DRUGS (2)
  1. IBUPROFEN [Suspect]
     Active Substance: IBUPROFEN
     Indication: Drug provocation test
     Dosage: UNK
     Route: 048
  2. FLURBIPROFEN [Suspect]
     Active Substance: FLURBIPROFEN
     Indication: Product used for unknown indication
     Dosage: UNK

REACTIONS (5)
  - Paraesthesia [Unknown]
  - Angioedema [Unknown]
  - Anaphylactic reaction [Recovered/Resolved]
  - Hypersensitivity [Unknown]
  - Erythema [Unknown]
